FAERS Safety Report 4650323-6 (Version None)
Quarter: 2005Q2

REPORT INFORMATION
  Report Type: 
  Country: None (occurrence: None)
  Receive Date: 20050429
  Receipt Date: 20050418
  Transmission Date: 20051028
  Serious: Yes (Hospitalization)
  Sender: FDA-Public Use
  Company Number: 2005062164

PATIENT
  Age: 54 Year
  Sex: Female

DRUGS (2)
  1. DOSTINEX [Suspect]
     Indication: HYPERPROLACTINAEMIA
     Dosage: 0.5 MG (0.5 MG, SINGLE INTERVAL: EVERYDAY), ORAL
     Route: 048
     Dates: start: 20040701, end: 20050411
  2. RISEDRONATE SODIUM (RISEDRONATE SODIUM) [Concomitant]

REACTIONS (2)
  - ACROMEGALY [None]
  - SURGERY [None]
